FAERS Safety Report 11404087 (Version 1)
Quarter: 2015Q3

REPORT INFORMATION
  Report Type: Spontaneous
  Country: US (occurrence: US)
  Receive Date: 20150821
  Receipt Date: 20150821
  Transmission Date: 20151125
  Serious: Yes (Other)
  Sender: FDA-Public Use
  Company Number: US-PFIZER INC-2015276186

PATIENT

DRUGS (2)
  1. DILANTIN [Suspect]
     Active Substance: PHENYTOIN
     Dosage: 300 MG A DAY
  2. KEPPRA [Concomitant]
     Active Substance: LEVETIRACETAM
     Dosage: 1100 MG, AT NIGHT

REACTIONS (3)
  - Drug ineffective [Unknown]
  - Drug level decreased [Unknown]
  - Seizure [Unknown]
